FAERS Safety Report 18998873 (Version 2)
Quarter: 2021Q1

REPORT INFORMATION
  Report Type: Spontaneous
  Country: US (occurrence: US)
  Receive Date: 20210311
  Receipt Date: 20210316
  Transmission Date: 20210420
  Serious: No
  Sender: FDA-Public Use
  Company Number: NVSC2021US050746

PATIENT
  Sex: Female

DRUGS (1)
  1. VITAMIN B12 [Suspect]
     Active Substance: CYANOCOBALAMIN
     Indication: PRODUCT USED FOR UNKNOWN INDICATION
     Dosage: 1 ML,
     Route: 065
     Dates: start: 20210219, end: 20210221

REACTIONS (7)
  - Product quality issue [Unknown]
  - Injection site pain [Unknown]
  - Condition aggravated [Unknown]
  - Oropharyngeal discomfort [Unknown]
  - Contusion [Unknown]
  - Bladder disorder [Unknown]
  - Burning sensation [Unknown]
